FAERS Safety Report 5909146-X (Version None)
Quarter: 2008Q4

REPORT INFORMATION
  Report Type: 
  Country: None (occurrence: None)
  Receive Date: 20081001
  Receipt Date: 20080917
  Transmission Date: 20090506
  Serious: Yes (Hospitalization)
  Sender: FDA-Public Use
  Company Number: 20285

PATIENT
  Age: 14 Year
  Sex: Male
  Weight: 93 kg

DRUGS (6)
  1. VINCRISTINE [Suspect]
     Dosage: 4 MG IV
     Route: 042
     Dates: start: 20080509, end: 20080514
  2. GLIVEC. MFR: NOT SPECIFIED [Suspect]
     Dosage: 600 MG QD PO
     Route: 048
     Dates: start: 20080515, end: 20080518
  3. METHOTREXATE. MFR: MERCK [Suspect]
     Dosage: 8600 MG IV
     Route: 042
     Dates: start: 20080509
  4. ENDOXAN. MFR: NOT SPECIFIED [Suspect]
     Dates: start: 20080510, end: 20080512
  5. CYTARABINE [Suspect]
     Dosage: 4300 UNITS IV
     Route: 042
     Dates: start: 20080513, end: 20080514
  6. BACTRIM [Suspect]
     Dates: start: 20080515, end: 20080518

REACTIONS (17)
  - CHEILITIS [None]
  - CHOLESTASIS [None]
  - CYTOLYTIC HEPATITIS [None]
  - DERMATITIS BULLOUS [None]
  - FEBRILE BONE MARROW APLASIA [None]
  - GASTROINTESTINAL DISORDER [None]
  - HAEMODIALYSIS [None]
  - HYPERNATRAEMIA [None]
  - HYPERTENSION [None]
  - MONOPLEGIA [None]
  - MUCOSAL HAEMORRHAGE [None]
  - OEDEMA [None]
  - PAIN [None]
  - RENAL FAILURE [None]
  - RESPIRATORY DISORDER [None]
  - STEVENS-JOHNSON SYNDROME [None]
  - THROMBOCYTOPENIA [None]
